FAERS Safety Report 7272931-9 (Version None)
Quarter: 2011Q1

REPORT INFORMATION
  Report Type: 
  Country: None (occurrence: None)
  Receive Date: 20110203
  Receipt Date: 20110124
  Transmission Date: 20110831
  Serious: Yes (Hospitalization, Other)
  Sender: FDA-Public Use
  Company Number: US-SANOFI-AVENTIS-2011SA005079

PATIENT
  Sex: Female

DRUGS (1)
  1. CLOPIDOGREL BISULFATE [Suspect]
     Route: 048

REACTIONS (6)
  - VASCULAR GRAFT [None]
  - HEPATITIS ACUTE [None]
  - FAECES DISCOLOURED [None]
  - CHROMATURIA [None]
  - JAUNDICE [None]
  - PALLOR [None]
